FAERS Safety Report 11190789 (Version 1)
Quarter: 2015Q2

REPORT INFORMATION
  Report Type: Report from Study
  Country: AU (occurrence: AU)
  Receive Date: 20150615
  Receipt Date: 20150615
  Transmission Date: 20150821
  Serious: Yes (Other)
  Sender: FDA-Public Use
  Company Number: AU-GSKJP-AU2015GSK083333AA

PATIENT
  Age: 39 Year
  Sex: Female

DRUGS (1)
  1. DABRAFENIB [Suspect]
     Active Substance: DABRAFENIB
     Indication: METASTATIC MALIGNANT MELANOMA
     Dosage: 150 MG, BID

REACTIONS (3)
  - Erythema nodosum [Not Recovered/Not Resolved]
  - Panniculitis [Not Recovered/Not Resolved]
  - Erythema [Unknown]
